FAERS Safety Report 8962433 (Version 1)
Quarter: 2012Q4

REPORT INFORMATION
  Report Type: 
  Country: FR (occurrence: FR)
  Receive Date: 20121213
  Receipt Date: 20121213
  Transmission Date: 20130627
  Serious: Yes (Hospitalization)
  Sender: FDA-Public Use
  Company Number: FR-BRISTOL-MYERS SQUIBB COMPANY-17176264

PATIENT
  Age: 83 Year
  Sex: Female

DRUGS (10)
  1. COUMADIN TABS 2 MG [Suspect]
     Indication: ATRIAL FIBRILLATION
     Route: 048
     Dates: start: 20121027
  2. PLAVIX [Suspect]
     Indication: MYOCARDIAL ISCHAEMIA
     Route: 048
     Dates: start: 20121029
  3. KARDEGIC [Suspect]
     Dosage: powder for oral solution in sachet dose.
     Route: 048
  4. HEMIGOXINE NATIVELLE [Concomitant]
     Dosage: tabs
     Route: 048
  5. INEXIUM [Concomitant]
     Dosage: gastro-resistant tablet.
     Route: 048
  6. LASILIX [Concomitant]
     Dosage: Lasilix Special 500 mg scored tablet.
     Route: 048
  7. CARDENSIEL [Concomitant]
     Dosage: scored film-coated tablet
     Route: 048
  8. LEVOTHYROX [Concomitant]
     Dosage: scored tablet.
     Route: 048
  9. NORSET [Concomitant]
     Dosage: film-coated tablet.
     Route: 048
  10. TAHOR [Concomitant]
     Dosage: film-coated tablet.
     Route: 048

REACTIONS (4)
  - Microcytic anaemia [Recovering/Resolving]
  - Gastrointestinal haemorrhage [Recovering/Resolving]
  - Haematoma [Recovering/Resolving]
  - Renal failure acute [Recovering/Resolving]
